FAERS Safety Report 11422878 (Version 1)
Quarter: 2015Q3

REPORT INFORMATION
  Report Type: Spontaneous
  Country: US (occurrence: None)
  Receive Date: 20150826
  Receipt Date: 20150826
  Transmission Date: 20151125
  Serious: Yes (Hospitalization)
  Sender: FDA-Public Use
  Company Number: None

PATIENT
  Age: 28 Year
  Sex: Female
  Weight: 80 kg

DRUGS (3)
  1. ALTEPLASE [Suspect]
     Active Substance: ALTEPLASE
     Indication: CEREBROVASCULAR ACCIDENT
  2. MAGNESIUM [Concomitant]
     Active Substance: MAGNESIUM
  3. IOHEXOL [Concomitant]
     Active Substance: IOHEXOL

REACTIONS (4)
  - Pulmonary embolism [None]
  - Anaphylactic reaction [None]
  - Generalised tonic-clonic seizure [None]
  - Urticaria [None]

NARRATIVE: CASE EVENT DATE: 20150825
